FAERS Safety Report 14302264 (Version 1)
Quarter: 2017Q4

REPORT INFORMATION
  Report Type: Spontaneous
  Country: US (occurrence: US)
  Receive Date: 20171219
  Receipt Date: 20171219
  Transmission Date: 20180321
  Serious: No
  Sender: FDA-Public Use
  Company Number: US-SUPERNUS PHARMACEUTICALS, INC.-2017SUP00034

PATIENT
  Age: 60 Year
  Sex: Female
  Weight: 82.99 kg

DRUGS (8)
  1. TROKENDI XR [Suspect]
     Active Substance: TOPIRAMATE
     Indication: SEIZURE
     Dosage: 200 MG, 1X/DAY AT NIGHT
     Route: 048
  2. ESTRADIOL. [Concomitant]
     Active Substance: ESTRADIOL
  3. CYTOMEL [Concomitant]
     Active Substance: LIOTHYRONINE SODIUM
  4. TOPIRAMATE IMMEDIATE RELEASE [Suspect]
     Active Substance: TOPIRAMATE
     Dosage: UNK
     Dates: start: 201701
  5. SYNTHROID [Concomitant]
     Active Substance: LEVOTHYROXINE SODIUM
  6. TOPIRAMATE IMMEDIATE RELEASE [Suspect]
     Active Substance: TOPIRAMATE
     Dosage: UNK
     Dates: start: 201610
  7. TROKENDI XR [Suspect]
     Active Substance: TOPIRAMATE
     Indication: SEIZURE
     Dosage: 100 MG, UNK
     Route: 048
     Dates: start: 201609
  8. TOPIRAMATE IMMEDIATE RELEASE [Suspect]
     Active Substance: TOPIRAMATE
     Indication: SEIZURE
     Dosage: UNK
     Dates: start: 201609

REACTIONS (2)
  - Female orgasmic disorder [Not Recovered/Not Resolved]
  - Feeling abnormal [Not Recovered/Not Resolved]

NARRATIVE: CASE EVENT DATE: 201609
